FAERS Safety Report 5109905-X (Version None)
Quarter: 2006Q3

REPORT INFORMATION
  Report Type: 
  Country: None (occurrence: None)
  Receive Date: 20060921
  Receipt Date: 20060621
  Transmission Date: 20061208
  Serious: Yes (Disabling)
  Sender: FDA-Public Use
  Company Number: PHEH2006US08145

PATIENT
  Age: 70 Year
  Sex: Male
  Weight: 108.39 kg

DRUGS (7)
  1. DIOVAN [Suspect]
     Indication: HYPERTENSION
     Dosage: 40 MG, QD
     Dates: start: 20060401
  2. DIOVAN [Suspect]
     Dosage: 160 MG, QD
  3. LOVASTATIN [Suspect]
     Indication: BLOOD CHOLESTEROL INCREASED
     Dosage: 20 MG, QD
     Dates: start: 20050214
  4. PREVACID [Concomitant]
     Dosage: 30 MG, BID
     Route: 048
  5. NASACORT [Concomitant]
     Dosage: UNK, QD
     Route: 045
  6. ASPIRIN [Concomitant]
     Dosage: 81 MG, QD
     Route: 048
  7. MULTIVITAMIN [Concomitant]
     Indication: VITAMIN SUPPLEMENTATION
     Dosage: UNK, QD
     Route: 048

REACTIONS (8)
  - ARTHRALGIA [None]
  - BLOOD CREATINE PHOSPHOKINASE INCREASED [None]
  - BLOOD PRESSURE INADEQUATELY CONTROLLED [None]
  - C-REACTIVE PROTEIN INCREASED [None]
  - MYALGIA [None]
  - PAIN IN EXTREMITY [None]
  - POLYMYALGIA RHEUMATICA [None]
  - RED BLOOD CELL SEDIMENTATION RATE INCREASED [None]
